FAERS Safety Report 9180090 (Version 1)
Quarter: 2013Q1

REPORT INFORMATION
  Report Type: Spontaneous
  Country: ES (occurrence: ES)
  Receive Date: 20130321
  Receipt Date: 20130321
  Transmission Date: 20140127
  Serious: Yes (Other)
  Sender: FDA-Public Use
  Company Number: PHHY2013ES025762

PATIENT
  Age: 82 Year
  Sex: Male

DRUGS (3)
  1. ENOXAPARIN [Suspect]
     Indication: DEEP VEIN THROMBOSIS
     Dosage: 80 MG, Q12H
     Route: 058
  2. ASPIRIN [Concomitant]
     Dosage: 100 MG, PER DAY
  3. ACENOCOUMAROL [Concomitant]

REACTIONS (2)
  - Dermatitis bullous [Recovered/Resolved]
  - Haemorrhage [Recovered/Resolved]
